FAERS Safety Report 14582137 (Version 4)
Quarter: 2020Q3

REPORT INFORMATION
  Report Type: Report from Study
  Country: US (occurrence: US)
  Receive Date: 20180228
  Receipt Date: 20200811
  Transmission Date: 20201102
  Serious: Yes (Hospitalization, Disabling, Other)
  Sender: FDA-Public Use
  Company Number: US-SA-2018SA050069

PATIENT
  Sex: Male

DRUGS (2)
  1. ALEMTUZUMAB [Suspect]
     Active Substance: ALEMTUZUMAB
     Dosage: 12 MG,QD
     Route: 041
     Dates: start: 20171127, end: 20171129
  2. ALEMTUZUMAB [Suspect]
     Active Substance: ALEMTUZUMAB
     Indication: MULTIPLE SCLEROSIS
     Dosage: 12 MG,QD
     Route: 041
     Dates: start: 20161114, end: 20161118

REACTIONS (14)
  - Drug ineffective [Unknown]
  - Cellulitis [Recovered/Resolved]
  - Gait disturbance [Recovering/Resolving]
  - General physical health deterioration [Unknown]
  - Hemiparesis [Unknown]
  - Hypoacusis [Unknown]
  - Drug monitoring procedure not performed [Unknown]
  - Influenza [Unknown]
  - Visual impairment [Unknown]
  - Photosensitivity reaction [Unknown]
  - Balance disorder [Unknown]
  - Musculoskeletal disorder [Unknown]
  - Fall [Not Recovered/Not Resolved]
  - Asthenia [Recovering/Resolving]

NARRATIVE: CASE EVENT DATE: 2017
